FAERS Safety Report 8233938-8 (Version None)
Quarter: 2012Q1

REPORT INFORMATION
  Report Type: 
  Country: None (occurrence: None)
  Receive Date: 20120323
  Receipt Date: 20120323
  Transmission Date: 20120608
  Serious: No
  Sender: FDA-Public Use
  Company Number: None

PATIENT
  Age: 88 Year
  Sex: Male
  Weight: 76.4 kg

DRUGS (1)
  1. BRIMONIDINE TARTRATE [Suspect]
     Indication: GLAUCOMA
     Dosage: 1 DROPS BID EYE
     Route: 047
     Dates: start: 20120227, end: 20120314

REACTIONS (1)
  - CONJUNCTIVITIS [None]
